FAERS Safety Report 19723594 (Version 2)
Quarter: 2021Q3

REPORT INFORMATION
  Report Type: Other
  Country: GB (occurrence: GB)
  Receive Date: 20210819
  Receipt Date: 20210901
  Transmission Date: 20211014
  Serious: Yes (Other)
  Sender: FDA-Public Use
  Company Number: GB-MAYNE PHARMA-2021MYN000505

PATIENT

DRUGS (25)
  1. BUSCOPAN [Concomitant]
     Active Substance: BUTYLSCOPOLAMINE BROMIDE
     Indication: PRODUCT USED FOR UNKNOWN INDICATION
     Dosage: 20 MG, 4/DAYS
     Dates: start: 20160625
  2. CODEINE [Concomitant]
     Active Substance: CODEINE
     Indication: PHANTOM LIMB SYNDROME
     Dosage: 30 MG, 2/DAYS
     Dates: start: 20160919
  3. DEXAMETHASONE. [Concomitant]
     Active Substance: DEXAMETHASONE
     Indication: HEADACHE
     Dosage: 1 MG, EVERY 2 DAYS
     Dates: start: 20191204, end: 20191223
  4. DEXAMETHASONE. [Concomitant]
     Active Substance: DEXAMETHASONE
     Dosage: 4 MG, EVERY 1 DAYS
     Dates: start: 20200611
  5. DOCUSATE [Concomitant]
     Active Substance: DOCUSATE
     Indication: CONSTIPATION
     Dosage: 100 MG, UNK
     Dates: start: 20210226
  6. TAMOXIFEN CITRATE. [Suspect]
     Active Substance: TAMOXIFEN CITRATE
     Indication: BREAST CANCER METASTATIC
     Dosage: 20 MG, QD
     Route: 048
     Dates: start: 20161010, end: 20190708
  7. PERTUZUMAB. [Suspect]
     Active Substance: PERTUZUMAB
     Indication: BREAST CANCER METASTATIC
     Dosage: 840 MG (LOADING DOSE)
     Route: 042
     Dates: start: 20160425, end: 20160425
  8. DEXAMETHASONE. [Concomitant]
     Active Substance: DEXAMETHASONE
     Dosage: 0.5 MG, EVERY 2 DAYS
     Dates: start: 20191224, end: 202002
  9. OMEPRAZOLE. [Concomitant]
     Active Substance: OMEPRAZOLE
     Indication: METASTASES TO CENTRAL NERVOUS SYSTEM
     Dosage: 20 MG, 2/DAYS
     Dates: start: 201909
  10. LETROZOLE. [Suspect]
     Active Substance: LETROZOLE
     Indication: BREAST CANCER METASTATIC
     Dosage: 2.5 MCG, QD
     Route: 048
     Dates: start: 20190709
  11. AMITRIPTYLINE [Concomitant]
     Active Substance: AMITRIPTYLINE
     Indication: METASTASES TO CENTRAL NERVOUS SYSTEM
     Dosage: 10 MG, QD
     Route: 065
     Dates: start: 20210407
  12. DEXAMETHASONE. [Concomitant]
     Active Substance: DEXAMETHASONE
     Dosage: 4 MG, 2/DAYS
     Dates: start: 201909, end: 20191010
  13. DOCETAXEL. [Suspect]
     Active Substance: DOCETAXEL
     Indication: BREAST CANCER METASTATIC
     Dosage: 120 MG, EVERY 3 WEEKS
     Route: 042
     Dates: start: 20160314, end: 20160810
  14. DEXAMETHASONE. [Concomitant]
     Active Substance: DEXAMETHASONE
     Dosage: 2 MG, EVERY 1 DAYS
     Dates: start: 20191011, end: 20191125
  15. LAXIDO [Concomitant]
     Active Substance: POLYETHYLENE GLYCOL 3350\POTASSIUM CHLORIDE\SODIUM BICARBONATE\SODIUM CHLORIDE
     Indication: PRODUCT USED FOR UNKNOWN INDICATION
     Dosage: EVERY 1 DAYS
     Dates: start: 20160627
  16. PERTUZUMAB. [Suspect]
     Active Substance: PERTUZUMAB
     Dosage: 420 MG, EVERY 3 WEEKS
     Route: 042
     Dates: start: 20160516
  17. PERTUZUMAB. [Suspect]
     Active Substance: PERTUZUMAB
     Dosage: 66801.664 (CUMULATIVE DOSE)
     Route: 042
     Dates: start: 20160425, end: 20160425
  18. PERTUZUMAB. [Suspect]
     Active Substance: PERTUZUMAB
     Dosage: 32980.8 MG (CUMULATIVE DOSE)
     Route: 042
     Dates: start: 20160516
  19. DEXAMETHASONE. [Concomitant]
     Active Substance: DEXAMETHASONE
     Dosage: 1.5 MG, EVERY 1 DAYS
     Dates: start: 20191126, end: 20191203
  20. DEXAMETHASONE. [Concomitant]
     Active Substance: DEXAMETHASONE
     Dosage: 812.08 MG (CUMULATIVE DOSE)
     Route: 065
     Dates: start: 20191011, end: 20191125
  21. IBUPROFEN. [Concomitant]
     Active Substance: IBUPROFEN
     Indication: MUSCULOSKELETAL PAIN
     Dosage: 200 MG, AS NECESSARY
     Dates: start: 20160612
  22. TRASTUZUMAB. [Suspect]
     Active Substance: TRASTUZUMAB
     Indication: BREAST CANCER METASTATIC
     Dosage: 600 MG, EVERY 3 WEEKS
     Route: 058
     Dates: start: 20160415
  23. DEXAMETHASONE. [Concomitant]
     Active Substance: DEXAMETHASONE
     Indication: METASTASES TO CENTRAL NERVOUS SYSTEM
     Dosage: 4 MG, EVERY 1 DAYS
     Dates: start: 20210216
  24. ORAMORPH SR SUSTAINED RELEASE [Concomitant]
     Active Substance: MORPHINE SULFATE
     Indication: METASTASES TO CENTRAL NERVOUS SYSTEM
     Dosage: AS NECESSARY
     Dates: start: 20210311
  25. PARACETAMOL [Concomitant]
     Active Substance: ACETAMINOPHEN
     Indication: MUSCULOSKELETAL PAIN
     Dosage: 1 G, AS NECESSARY
     Dates: start: 20160612

REACTIONS (7)
  - Vision blurred [Not Recovered/Not Resolved]
  - Constipation [Unknown]
  - Urinary tract infection [Recovered/Resolved]
  - Headache [Not Recovered/Not Resolved]
  - Cellulitis [Unknown]
  - Skin infection [Not Recovered/Not Resolved]
  - Acarodermatitis [Recovered/Resolved]

NARRATIVE: CASE EVENT DATE: 20201120
